FAERS Safety Report 5636420-7 (Version None)
Quarter: 2008Q1

REPORT INFORMATION
  Report Type: 
  Country: None (occurrence: None)
  Receive Date: 20080225
  Receipt Date: 20071228
  Transmission Date: 20080703
  Serious: No
  Sender: FDA-Public Use
  Company Number: A0700758A

PATIENT
  Age: 56 Year
  Sex: Female

DRUGS (3)
  1. VERAMYST [Suspect]
     Indication: SINUSITIS
     Route: 045
     Dates: start: 20071206
  2. UNKNOWN SUPPLEMENT [Concomitant]
  3. HORMONE PATCH [Concomitant]

REACTIONS (1)
  - DYSGEUSIA [None]
